FAERS Safety Report 8289341-8 (Version None)
Quarter: 2012Q2

REPORT INFORMATION
  Report Type: 
  Country: None (occurrence: None)
  Receive Date: 20120417
  Receipt Date: 20120413
  Transmission Date: 20120825
  Serious: Yes (Death, Other)
  Sender: FDA-Public Use
  Company Number: PHHY2012JP015837

PATIENT
  Sex: Female
  Weight: 65 kg

DRUGS (38)
  1. CLOZARIL [Suspect]
     Dosage: 500 MG, DAILY
     Route: 048
     Dates: start: 20110923, end: 20111201
  2. CLOZARIL [Suspect]
     Dosage: 600 MG, DAILY
     Route: 048
     Dates: start: 20111202
  3. LORAZEPAM [Concomitant]
     Dosage: 3 MG, UNK
     Route: 048
     Dates: start: 20091214, end: 20111102
  4. CLOZARIL [Suspect]
     Indication: SCHIZOPHRENIA
     Dosage: 12.5 MG, DAILY
     Route: 048
     Dates: start: 20110708, end: 20110708
  5. CLOZARIL [Suspect]
     Dosage: 325 MG, DAILY
     Route: 048
     Dates: start: 20110812, end: 20110818
  6. LEUCON [Concomitant]
     Dosage: 60 MG, UNK
     Route: 048
  7. CLOZARIL [Suspect]
     Dosage: 175 MG, DAILY
     Route: 048
     Dates: start: 20110801, end: 20110803
  8. TSUMURA DAI-KENCHU-TO [Concomitant]
     Indication: CONSTIPATION
     Dosage: 3 DF, UNK
     Route: 048
  9. ROHYPNOL [Concomitant]
     Dosage: 2 MG, UNK
     Route: 048
  10. SETOUS [Concomitant]
     Dosage: 150 MG, UNK
     Route: 048
  11. SETOUS [Concomitant]
     Dosage: 75 MG, UNK
     Route: 048
     Dates: end: 20110910
  12. CLOZARIL [Suspect]
     Dosage: 75 MG, DAILY
     Route: 048
     Dates: start: 20110722, end: 20110723
  13. SENNOSIDE [Concomitant]
     Indication: CONSTIPATION
     Dosage: 24 MG, UNK
     Route: 048
  14. LITHIUM CARBONATE [Concomitant]
     Dosage: 400 MG, UNK
     Route: 048
  15. FERROUS SULFATE TAB [Concomitant]
     Dosage: 1 DF, UNK
     Route: 048
  16. ZYPREXA [Concomitant]
     Dosage: 20 MG, UNK
     Route: 048
     Dates: start: 20040924
  17. ZYPREXA [Concomitant]
     Dosage: 10 MG, UNK
     Route: 048
  18. SETOUS [Concomitant]
     Dosage: 300 MG, UNK
     Route: 048
     Dates: start: 20091214
  19. LEVOTOMIN [Concomitant]
     Dosage: 50 MG, UNK
     Route: 048
     Dates: start: 20090301, end: 20110924
  20. CLOZARIL [Suspect]
     Dosage: 100 MG, DAILY
     Route: 048
     Dates: start: 20110724, end: 20110725
  21. CLOZARIL [Suspect]
     Dosage: 400 MG, DAILY
     Route: 048
     Dates: start: 20110819, end: 20110922
  22. ACETAMINOPHEN [Concomitant]
     Indication: INFLUENZA
     Dosage: 400 MG, UNK
     Route: 048
     Dates: start: 20120219
  23. TSUMURA DAI-KENCHU-TO [Concomitant]
     Dosage: 7500 MG, UNK
     Route: 048
  24. PAXIL [Concomitant]
     Dosage: 20 MG, UNK
     Route: 048
  25. CLOZARIL [Suspect]
     Dosage: 50 MG, DAILY
     Route: 048
     Dates: start: 20110712, end: 20110721
  26. CLOZARIL [Suspect]
     Dosage: 150 MG, DAILY
     Route: 048
     Dates: start: 20110729, end: 20110731
  27. FERROUS SULFATE TAB [Concomitant]
     Dosage: 105 MG, UNK
     Route: 048
  28. CLOZARIL [Suspect]
     Dosage: 125 MG, DAILY
     Route: 048
     Dates: start: 20110726, end: 20110728
  29. CLOZARIL [Suspect]
     Dosage: 300 MG, DAILY
     Route: 048
     Dates: start: 20110805, end: 20110811
  30. MEDICON (DEXTROMETHORPHAN HYDROBROMIDE) [Concomitant]
     Indication: INFLUENZA
     Dosage: 3 DF, FOR 5 DAYS
     Route: 048
     Dates: start: 20120219
  31. BLADDERON [Concomitant]
     Dosage: 600 MG, UNK
     Route: 048
  32. TERBINAFINE HCL [Concomitant]
     Dosage: 2 MG, UNK
     Route: 048
  33. ZYPREXA [Concomitant]
     Dosage: 5 MG, UNK
     Route: 048
     Dates: end: 20110813
  34. CLOZARIL [Suspect]
     Dosage: 25 MG, DAILY
     Route: 048
     Dates: start: 20110709, end: 20110711
  35. CLOZARIL [Suspect]
     Dosage: 200 MG, DAILY
     Route: 048
     Dates: start: 20110804, end: 20110804
  36. MAGNESIUM OXIDE [Concomitant]
     Indication: CONSTIPATION
     Dosage: 1500 MG, UNK
     Route: 048
  37. DORAL [Concomitant]
     Dosage: 15 MG, UNK
     Route: 048
  38. RISPERDAL [Concomitant]
     Dosage: 8 MG, UNK
     Route: 048
     Dates: start: 20110824, end: 20110906

REACTIONS (17)
  - CARDIO-RESPIRATORY ARREST [None]
  - NEUTROPHIL COUNT INCREASED [None]
  - RED BLOOD CELL COUNT DECREASED [None]
  - BLOOD GLUCOSE INCREASED [None]
  - PYREXIA [None]
  - MYOCARDIAL INFARCTION [None]
  - HAEMOGLOBIN DECREASED [None]
  - INTESTINAL OBSTRUCTION [None]
  - LYMPHOCYTE COUNT DECREASED [None]
  - ABDOMINAL DISTENSION [None]
  - GASTROINTESTINAL DISORDER [None]
  - VOMITING [None]
  - WHITE BLOOD CELL COUNT INCREASED [None]
  - ASPIRATION [None]
  - INFLUENZA A VIRUS TEST POSITIVE [None]
  - DIARRHOEA [None]
  - ASPHYXIA [None]
